FAERS Safety Report 13957235 (Version 5)
Quarter: 2017Q4

REPORT INFORMATION
  Report Type: Report from Study
  Country: CO (occurrence: CO)
  Receive Date: 20170911
  Receipt Date: 20171113
  Transmission Date: 20180320
  Serious: Yes (Hospitalization, Other)
  Sender: FDA-Public Use
  Company Number: PHHY2017CO081304

PATIENT
  Age: 73 Year
  Sex: Female
  Weight: 76 kg

DRUGS (7)
  1. REVOLADE [Suspect]
     Active Substance: ELTROMBOPAG
     Indication: THROMBOCYTOPENIC PURPURA
     Dosage: 25 MG, QD
     Route: 048
     Dates: start: 20070108
  2. AMOXICILLIN. [Suspect]
     Active Substance: AMOXICILLIN
     Indication: PRODUCT USED FOR UNKNOWN INDICATION
     Route: 065
  3. VITAMIIN C [Concomitant]
     Active Substance: ASCORBIC ACID
     Indication: PRODUCT USED FOR UNKNOWN INDICATION
     Dosage: UNK
     Route: 065
  4. LOVASTATIN. [Suspect]
     Active Substance: LOVASTATIN
     Indication: PRODUCT USED FOR UNKNOWN INDICATION
     Route: 065
  5. FERROUS SULFATE. [Concomitant]
     Active Substance: FERROUS SULFATE
     Indication: PRODUCT USED FOR UNKNOWN INDICATION
     Route: 065
  6. LOSARTAN. [Suspect]
     Active Substance: LOSARTAN
     Indication: PRODUCT USED FOR UNKNOWN INDICATION
     Dosage: 50 MG, UNK
     Route: 065
  7. OMEPRAZOLE. [Concomitant]
     Active Substance: OMEPRAZOLE
     Indication: PRODUCT USED FOR UNKNOWN INDICATION
     Route: 065

REACTIONS (18)
  - Mouth haemorrhage [Unknown]
  - Platelet count decreased [Unknown]
  - Platelet count increased [Unknown]
  - Epistaxis [Unknown]
  - Skin depigmentation [Unknown]
  - Abdominal pain upper [Unknown]
  - Blood triglycerides increased [Unknown]
  - Malaise [Recovering/Resolving]
  - Ear disorder [Unknown]
  - Hypersensitivity [Unknown]
  - Vaginal haemorrhage [Unknown]
  - Blood urine present [Unknown]
  - Haemorrhage [Unknown]
  - Influenza [Recovering/Resolving]
  - Cough [Unknown]
  - Rhinitis [Recovering/Resolving]
  - Blood cholesterol increased [Unknown]
  - Haematochezia [Unknown]

NARRATIVE: CASE EVENT DATE: 201609
